FAERS Safety Report 7672565-8 (Version None)
Quarter: 2011Q3

REPORT INFORMATION
  Report Type: 
  Country: None (occurrence: None)
  Receive Date: 20110809
  Receipt Date: 20110727
  Transmission Date: 20111222
  Serious: Yes (Hospitalization)
  Sender: FDA-Public Use
  Company Number: MX-MYLANLABS-2011S1015799

PATIENT
  Age: 16 Year
  Sex: Female
  Weight: 42 kg

DRUGS (2)
  1. METHOTREXATE [Suspect]
     Dosage: 500MG AS A SINGLE DOSE
     Route: 030
  2. MISOPROSTOL [Concomitant]
     Route: 067

REACTIONS (14)
  - ORAL CANDIDIASIS [None]
  - MUCOSAL INFLAMMATION [None]
  - DIARRHOEA [None]
  - MATERNAL EXPOSURE DURING PREGNANCY [None]
  - ABORTION INFECTED [None]
  - ERYTHEMA [None]
  - SEPSIS [None]
  - MUCOSAL HAEMORRHAGE [None]
  - NEUTROPENIA [None]
  - VAGINAL HAEMORRHAGE [None]
  - SKIN EXFOLIATION [None]
  - NAUSEA [None]
  - TOXICITY TO VARIOUS AGENTS [None]
  - VOMITING [None]
